FAERS Safety Report 12621423 (Version 1)
Quarter: 2016Q3

REPORT INFORMATION
  Report Type: Spontaneous
  Country: GB (occurrence: GB)
  Receive Date: 20160804
  Receipt Date: 20160804
  Transmission Date: 20161109
  Serious: Yes (Other)
  Sender: FDA-Public Use
  Company Number: GB-AUROBINDO-AUR-APL-2016-09769

PATIENT
  Age: 70 Day
  Sex: Male
  Weight: 2.1 kg

DRUGS (7)
  1. VALGANCICLOVIR. [Suspect]
     Active Substance: VALGANCICLOVIR
     Indication: CYTOMEGALOVIRUS INFECTION
     Dosage: 14 MG/KG, TWO TIMES A DAY
     Route: 048
     Dates: start: 20160527, end: 20160622
  2. SYTRON [Concomitant]
     Indication: ANAEMIA NEONATAL
     Dosage: 1 ML, UNK
     Route: 048
  3. SODIUM ACID PHOSPHATE              /00706601/ [Concomitant]
     Indication: METABOLIC DISORDER
     Dosage: 4 MMOL, UNK
     Route: 048
  4. VITAMIN E                          /00110501/ [Concomitant]
     Active Substance: TOCOPHEROL
     Indication: CHOLESTASIS
     Dosage: 18 MG, UNK
     Route: 048
  5. ABIDEC [Concomitant]
     Indication: PRODUCT USED FOR UNKNOWN INDICATION
     Dosage: 0.6 ML, UNK
     Route: 048
  6. URSODEOXYCHOLIC ACID [Concomitant]
     Active Substance: URSODIOL
     Indication: CHOLESTASIS
     Dosage: 11 MG, UNK
     Route: 048
  7. VITAMIN K [Concomitant]
     Active Substance: PHYTONADIONE
     Indication: CHOLESTASIS
     Dosage: 1 MG, UNK
     Route: 048

REACTIONS (1)
  - Hypoglycaemia [Not Recovered/Not Resolved]

NARRATIVE: CASE EVENT DATE: 20160612
